FAERS Safety Report 8050017 (Version 4)
Quarter: 2013Q4

REPORT INFORMATION
  Report Type: Spontaneous
  Country: JP (occurrence: JP)
  Receive Date: 20110722
  Receipt Date: 20131016
  Transmission Date: 20140711
  Serious: Yes (Hospitalization, Other)
  Sender: FDA-Public Use
  Company Number: JP-PFIZER INC-2011136417

PATIENT
  Age: 69 Year
  Sex: Male
  Weight: 42 kg

DRUGS (11)
  1. RHEUMATREX [Suspect]
     Indication: RHEUMATOID ARTHRITIS
     Dosage: 8 MG, WEEKLY
     Route: 048
     Dates: start: 20101111, end: 20110520
  2. RHEUMATREX [Suspect]
     Dosage: 12 MG, WEEKLY
     Route: 048
     Dates: start: 20110521, end: 20110625
  3. REMICADE [Suspect]
     Indication: RHEUMATOID ARTHRITIS
     Dosage: 160 MG, SINGLE
     Route: 042
     Dates: start: 20110615, end: 20110615
  4. CELECOXIB [Concomitant]
     Indication: PAIN
     Dosage: 200 MG, 2X/DAY
  5. PREDNISOLONE [Concomitant]
     Indication: RHEUMATOID ARTHRITIS
     Dosage: 10 MG, 1X/DAY
     Route: 048
  6. PARIET [Concomitant]
     Indication: GASTROOESOPHAGEAL REFLUX DISEASE
     Dosage: 10 MG, 1X/DAY
     Route: 048
  7. MUCOSTA [Concomitant]
     Indication: GASTRIC MUCOSAL LESION
     Dosage: 100 MG, 2X/DAY
     Route: 048
  8. FOLIAMIN [Concomitant]
     Indication: PROPHYLAXIS
     Dosage: 6 MG, WEEKLY
     Route: 048
  9. FERRUM ORAL ^LEK^ [Concomitant]
  10. CINAL [Concomitant]
  11. POSTERISAN FORTE [Concomitant]

REACTIONS (2)
  - Pneumonia [Recovering/Resolving]
  - Thrombocytopenia [Recovering/Resolving]
